FAERS Safety Report 7756510-2 (Version None)
Quarter: 2011Q3

REPORT INFORMATION
  Report Type: 
  Country: None (occurrence: None)
  Receive Date: 20110916
  Receipt Date: 20110906
  Transmission Date: 20111222
  Serious: Yes (Hospitalization, Other)
  Sender: FDA-Public Use
  Company Number: US-ELI_LILLY_AND_COMPANY-US201107001046

PATIENT
  Sex: Female

DRUGS (7)
  1. ZOCOR [Concomitant]
  2. FORTEO [Suspect]
     Dosage: 20 UG, QD
     Route: 065
     Dates: end: 20110811
  3. CEPHALEXIN [Concomitant]
     Dosage: 500 MG, BID
  4. SIMVASTATIN [Concomitant]
  5. FORTEO [Suspect]
     Indication: OSTEOPOROSIS
     Dosage: 20 UG, QD
     Route: 065
     Dates: start: 20110316
  6. NEXIUM [Concomitant]
  7. CARDIZEM CD [Concomitant]
     Dosage: 240 MG, UNK

REACTIONS (8)
  - HYPOAESTHESIA [None]
  - INJECTION SITE HAEMATOMA [None]
  - ARTHRITIS [None]
  - NERVE INJURY [None]
  - GAIT DISTURBANCE [None]
  - PAIN [None]
  - PARALYSIS [None]
  - BONE PAIN [None]
